FAERS Safety Report 9984823 (Version 2)
Quarter: 2014Q2

REPORT INFORMATION
  Report Type: Report from Study
  Country: US (occurrence: US)
  Receive Date: 20140307
  Receipt Date: 20140403
  Transmission Date: 20141212
  Serious: Yes (Death)
  Sender: FDA-Public Use
  Company Number: US-TEVA-466600USA

PATIENT
  Sex: Male

DRUGS (1)
  1. QVAR [Suspect]
     Route: 055

REACTIONS (1)
  - Lung cancer metastatic [Fatal]
